FAERS Safety Report 6388981-0 (Version None)
Quarter: 2009Q4

REPORT INFORMATION
  Report Type: 
  Country: None (occurrence: None)
  Receive Date: 20091001
  Receipt Date: 20090922
  Transmission Date: 20100525
  Serious: Yes (Hospitalization, Other)
  Sender: FDA-Public Use
  Company Number: ADR27772009

PATIENT
  Age: 86 Year
  Sex: Female

DRUGS (6)
  1. RAMIPRIL [Suspect]
     Dosage: 10 MG, ORAL
     Route: 048
  2. FUROSEMIDE [Concomitant]
  3. ASPIRIN [Concomitant]
  4. ATENOLOL [Concomitant]
  5. LEVOTHYROXINE SODIUM [Concomitant]
  6. SENNA (2 DF) [Concomitant]

REACTIONS (2)
  - DEHYDRATION [None]
  - RENAL FAILURE ACUTE [None]
